FAERS Safety Report 6860561-X (Version None)
Quarter: 2010Q3

REPORT INFORMATION
  Report Type: 
  Country: None (occurrence: None)
  Receive Date: 20100720
  Receipt Date: 20100712
  Transmission Date: 20110219
  Serious: Yes (Death, Hospitalization)
  Sender: FDA-Public Use
  Company Number: B0661507A

PATIENT
  Sex: Female

DRUGS (4)
  1. NABUCOX [Suspect]
     Dosage: 500MG TWICE PER DAY
     Route: 048
     Dates: start: 20100528
  2. LANSOPRAZOLE [Concomitant]
     Route: 065
  3. INIPOMP [Concomitant]
     Dosage: 20MG PER DAY
     Route: 048
     Dates: start: 20100528
  4. PARACETAMOL [Concomitant]
     Dosage: 4G PER DAY
     Route: 065

REACTIONS (4)
  - BURNING SENSATION [None]
  - CEREBRAL HAEMATOMA [None]
  - DIZZINESS [None]
  - MENINGORRHAGIA [None]
